FAERS Safety Report 8321925 (Version 2)
Quarter: 2013Q1

REPORT INFORMATION
  Report Type: Spontaneous
  Country: AU (occurrence: AU)
  Receive Date: 20120104
  Receipt Date: 20130204
  Transmission Date: 20140127
  Serious: Yes (Other)
  Sender: FDA-Public Use
  Company Number: PHHY2009AU15918

PATIENT
  Sex: Female

DRUGS (3)
  1. GLIVEC [Suspect]
     Indication: CHRONIC MYELOID LEUKAEMIA
     Dosage: 400 MG, UNK
     Route: 048
     Dates: start: 20070101
  2. GLIVEC [Suspect]
     Dosage: 400 MG, UNK
     Route: 048
     Dates: start: 200907, end: 2011
  3. PARACETAMOL [Concomitant]

REACTIONS (8)
  - Pelvic inflammatory disease [Unknown]
  - Impaired healing [Unknown]
  - Pain in extremity [Unknown]
  - Bone pain [Unknown]
  - Alopecia [Unknown]
  - Muscle spasms [Unknown]
  - Nausea [Unknown]
  - Breakthrough pain [Unknown]
